FAERS Safety Report 4361171-9 (Version None)
Quarter: 2004Q2

REPORT INFORMATION
  Report Type: 
  Country: None (occurrence: None)
  Receive Date: 20040507
  Receipt Date: 20030326
  Transmission Date: 20050107
  Serious: Yes (Other)
  Sender: FDA-Public Use
  Company Number: PHEH2003US02488

PATIENT
  Age: 68 Year
  Sex: Male

DRUGS (2)
  1. TEGRETOL [Suspect]
     Dosage: 400 MG, TID, ORAL
     Route: 048
  2. TRENTAL [Suspect]
     Dosage: 400 MG, TID, ORAL
     Route: 048

REACTIONS (5)
  - BRADYPHRENIA [None]
  - CONFUSIONAL STATE [None]
  - DRUG LEVEL INCREASED [None]
  - MEDICATION ERROR [None]
  - VOMITING [None]
